FAERS Safety Report 13113300 (Version 1)
Quarter: 2017Q1

REPORT INFORMATION
  Report Type: Spontaneous
  Country: GB (occurrence: GB)
  Receive Date: 20170113
  Receipt Date: 20170113
  Transmission Date: 20170428
  Serious: Yes (Other)
  Sender: FDA-Public Use
  Company Number: GB-TEVA-728826ACC

PATIENT
  Age: 75 Year
  Sex: Female

DRUGS (6)
  1. BRAGGS MEDICINAL CHARCOAL [Interacting]
     Active Substance: ACTIVATED CHARCOAL
     Indication: DYSPEPSIA
     Dosage: 2 DOSAGE FORMS DAILY;
     Route: 048
     Dates: start: 20161124, end: 20161224
  2. CANDESARTAN CILEXETIL. [Concomitant]
     Active Substance: CANDESARTAN CILEXETIL
     Dosage: 16 MILLIGRAM DAILY;
  3. FUROSEMIDE. [Concomitant]
     Active Substance: FUROSEMIDE
     Dosage: 20 MILLIGRAM DAILY;
  4. BISOPROLOL [Concomitant]
     Active Substance: BISOPROLOL
     Dosage: 2.5 MILLIGRAM DAILY;
  5. CLARITHROMYCIN. [Suspect]
     Active Substance: CLARITHROMYCIN
     Dosage: 1000 MILLIGRAM DAILY;
  6. AMOXICILLIN. [Interacting]
     Active Substance: AMOXICILLIN
     Dosage: 1500 MILLIGRAM DAILY;

REACTIONS (5)
  - Atrial fibrillation [Recovering/Resolving]
  - Drug ineffective [Recovering/Resolving]
  - Inhibitory drug interaction [Recovering/Resolving]
  - Condition aggravated [Recovering/Resolving]
  - Cardiac failure [Recovering/Resolving]

NARRATIVE: CASE EVENT DATE: 20161217
